FAERS Safety Report 11855271 (Version 1)
Quarter: 2015Q4

REPORT INFORMATION
  Report Type: Spontaneous
  Country: GB (occurrence: GB)
  Receive Date: 20151221
  Receipt Date: 20151221
  Transmission Date: 20160305
  Serious: Yes (Other)
  Sender: FDA-Public Use
  Company Number: GB-WATSON-2015-28115

PATIENT
  Sex: Male

DRUGS (1)
  1. LOSARTAN (UNKNOWN) [Suspect]
     Active Substance: LOSARTAN
     Indication: BLOOD PRESSURE MEASUREMENT
     Dosage: UNK UNK, UNKNOWN
     Route: 048
     Dates: start: 201403

REACTIONS (2)
  - Drug ineffective [Unknown]
  - Blood pressure increased [Unknown]
